FAERS Safety Report 14075586 (Version 1)
Quarter: 2017Q4

REPORT INFORMATION
  Report Type: Spontaneous
  Country: US (occurrence: US)
  Receive Date: 20171010
  Receipt Date: 20171010
  Transmission Date: 20180321
  Serious: No
  Sender: FDA-Public Use
  Company Number: US-MYLANLABS-2016M1048803

PATIENT
  Age: 72 Year
  Sex: Female
  Weight: 96.15 kg

DRUGS (2)
  1. AMILORIDE HYDROCHLORIDE AND HYDROCHLOROTHIAZIDE TABLETS, USP [Suspect]
     Active Substance: AMILORIDE HYDROCHLORIDE\HYDROCHLOROTHIAZIDE
     Indication: BLOOD PRESSURE MANAGEMENT
     Dosage: 5 MG/50 MG, AM
     Route: 048
  2. AMILORIDE HYDROCHLORIDE AND HYDROCHLOROTHIAZIDE TABLETS, USP [Suspect]
     Active Substance: AMILORIDE HYDROCHLORIDE\HYDROCHLOROTHIAZIDE
     Indication: OEDEMA

REACTIONS (2)
  - Oedema [Recovered/Resolved]
  - Drug ineffective [Recovered/Resolved]

NARRATIVE: CASE EVENT DATE: 20161106
